FAERS Safety Report 7901559-X (Version None)
Quarter: 2011Q4

REPORT INFORMATION
  Report Type: 
  Country: None (occurrence: None)
  Receive Date: 20111108
  Receipt Date: 20111017
  Transmission Date: 20120403
  Serious: Yes (Hospitalization)
  Sender: FDA-Public Use
  Company Number: CA-JNJFOC-20111009850

PATIENT
  Sex: Female

DRUGS (3)
  1. HYDROCORTISONE [Concomitant]
     Route: 042
  2. REMICADE [Suspect]
     Indication: CROHN'S DISEASE
     Route: 042
     Dates: start: 20110828, end: 20111017
  3. PURINETHOL [Concomitant]

REACTIONS (1)
  - INTESTINAL OPERATION [None]
